FAERS Safety Report 4967470-1 (Version None)
Quarter: 2006Q2

REPORT INFORMATION
  Report Type: 
  Country: None (occurrence: None)
  Receive Date: 20060404
  Receipt Date: 20060324
  Transmission Date: 20061013
  Serious: Yes (Hospitalization)
  Sender: FDA-Public Use
  Company Number: 2006BI004585

PATIENT
  Age: 46 Year
  Sex: Female
  Weight: 68.9467 kg

DRUGS (3)
  1. AVONEX [Suspect]
     Indication: MULTIPLE SCLEROSIS
     Dosage: 30 UG;QW;IM
     Route: 030
     Dates: start: 19980101, end: 20030801
  2. AVONEX [Suspect]
     Indication: MULTIPLE SCLEROSIS
     Dosage: 30 UG;QW;IM
     Route: 030
     Dates: start: 20030801
  3. PREDNISONE [Concomitant]

REACTIONS (7)
  - BLOOD CHOLESTEROL INCREASED [None]
  - BLOOD GLUCOSE INCREASED [None]
  - DIABETES MELLITUS [None]
  - FLUID RETENTION [None]
  - HYPOTHALAMO-PITUITARY DISORDERS [None]
  - THYROID DISORDER [None]
  - VISUAL DISTURBANCE [None]
